FAERS Safety Report 5763234-X (Version None)
Quarter: 2008Q2

REPORT INFORMATION
  Report Type: 
  Country: None (occurrence: None)
  Receive Date: 20080609
  Receipt Date: 20080528
  Transmission Date: 20081010
  Serious: Yes (Other)
  Sender: FDA-Public Use
  Company Number: US-PFIZER INC-2008046794

PATIENT
  Sex: Female
  Weight: 50 kg

DRUGS (12)
  1. CHANTIX [Suspect]
  2. ZOCOR [Concomitant]
  3. CENTRUM [Concomitant]
  4. CENTRUM [Concomitant]
  5. LASIX [Concomitant]
  6. POTASSIUM CHLORIDE [Concomitant]
  7. ASPIRIN [Concomitant]
  8. ASCORBIC ACID/COPPER/RETINOL/TOCOPHEROL/ZINC [Concomitant]
  9. NORVASC [Concomitant]
  10. METOPROLOL TARTRATE [Concomitant]
  11. EVISTA [Concomitant]
  12. VITAMIN D [Concomitant]

REACTIONS (3)
  - CONTUSION [None]
  - FALL [None]
  - SYNCOPE [None]
